FAERS Safety Report 5932238-6 (Version None)
Quarter: 2008Q4

REPORT INFORMATION
  Report Type: 
  Country: None (occurrence: None)
  Receive Date: 20081022
  Receipt Date: 20081015
  Transmission Date: 20090506
  Serious: Yes (Other)
  Sender: FDA-Public Use
  Company Number: GB-1166777

PATIENT
  Age: 29 Year
  Sex: Female

DRUGS (5)
  1. TIMOLOL MALEATE [Suspect]
     Indication: GLAUCOMA
     Dosage: TOPICAL
     Route: 047
  2. BRIMONIDINE TARTRATE [Suspect]
     Indication: GLAUCOMA
     Dosage: TOPICAL
     Route: 047
  3. LATANOPROST [Suspect]
     Indication: GLAUCOMA
     Dosage: TOPICAL
     Route: 047
  4. APRACLONIDINE (APRACLONIDINE) 1 % SOLUTION EYE DROPS, SOLUTION [Suspect]
     Indication: GLAUCOMA
     Dosage: TOPICAL
     Route: 047
  5. INSULIN (INSULIN) [Concomitant]

REACTIONS (2)
  - DRUG INEFFECTIVE [None]
  - VITREOUS HAEMORRHAGE [None]
